FAERS Safety Report 11424694 (Version 1)
Quarter: 2015Q3

REPORT INFORMATION
  Report Type: Report from Study
  Country: US (occurrence: US)
  Receive Date: 20150827
  Receipt Date: 20150827
  Transmission Date: 20151125
  Serious: Yes (Other)
  Sender: FDA-Public Use
  Company Number: US-ASTRAZENECA-2015SE80991

PATIENT
  Sex: Male

DRUGS (9)
  1. DALIRESP [Suspect]
     Active Substance: ROFLUMILAST
     Dosage: HALF OF A TABLET
     Route: 048
  2. SYMBICORT [Suspect]
     Active Substance: BUDESONIDE\FORMOTEROL FUMARATE DIHYDRATE
     Route: 055
  3. MUCINEX [Concomitant]
     Active Substance: GUAIFENESIN
  4. DALIRESP [Suspect]
     Active Substance: ROFLUMILAST
     Route: 048
  5. DALIRESP [Suspect]
     Active Substance: ROFLUMILAST
     Dosage: HALF OF A TABLET IN THE MORNING AND HALF A TABLET AT NIGHT
     Route: 048
  6. DALIRESP [Suspect]
     Active Substance: ROFLUMILAST
     Dosage: HALF OF A TABLET
     Route: 048
     Dates: start: 20150819
  7. ALBUTEROL. [Concomitant]
     Active Substance: ALBUTEROL
  8. SPIRIVA [Concomitant]
     Active Substance: TIOTROPIUM BROMIDE MONOHYDRATE
  9. DALIRESP [Suspect]
     Active Substance: ROFLUMILAST
     Dosage: ONE WHOLE TABLET ONE DAY AND THEN HALF OF A TABLET THE NEXT DAY
     Route: 048

REACTIONS (10)
  - Abdominal discomfort [Unknown]
  - Malaise [Unknown]
  - Back pain [Unknown]
  - Intentional product misuse [Unknown]
  - Insomnia [Unknown]
  - Productive cough [Unknown]
  - Weight decreased [Unknown]
  - Nausea [Recovered/Resolved]
  - Condition aggravated [Unknown]
  - Chronic obstructive pulmonary disease [Unknown]
